FAERS Safety Report 9319553 (Version 1)
Quarter: 2013Q2

REPORT INFORMATION
  Report Type: Spontaneous
  Country: US (occurrence: US)
  Receive Date: 20130530
  Receipt Date: 20130530
  Transmission Date: 20140414
  Serious: No
  Sender: FDA-Public Use
  Company Number: US-GLAXOSMITHKLINE-A1002156A

PATIENT
  Age: 42 Year
  Sex: Female

DRUGS (2)
  1. FLOLAN [Suspect]
     Dosage: 45NGKM CONTINUOUS
     Route: 065
     Dates: start: 20091223, end: 201210
  2. COUMADIN [Concomitant]

REACTIONS (5)
  - Dyspnoea [Unknown]
  - Fatigue [Unknown]
  - Haematoma [Unknown]
  - Sensation of blood flow [Unknown]
  - Pain [Unknown]
